FAERS Safety Report 6987448-6 (Version None)
Quarter: 2010Q3

REPORT INFORMATION
  Report Type: 
  Country: None (occurrence: None)
  Receive Date: 20100916
  Receipt Date: 20100910
  Transmission Date: 20110219
  Serious: Yes (Death, Other)
  Sender: FDA-Public Use
  Company Number: US-CELGENEUS-163-20785-10091077

PATIENT
  Age: 16 Year
  Sex: Female

DRUGS (3)
  1. THALOMID [Suspect]
     Route: 048
  2. CYCLOSPORINE [Suspect]
     Route: 065
  3. PREDNISONE [Suspect]
     Route: 065

REACTIONS (3)
  - LUNG DISORDER [None]
  - MULTI-ORGAN FAILURE [None]
  - SEPSIS [None]
